FAERS Safety Report 6613682-0 (Version None)
Quarter: 2010Q1

REPORT INFORMATION
  Report Type: 
  Country: None (occurrence: None)
  Receive Date: 20100225
  Receipt Date: 20100217
  Transmission Date: 20100710
  Serious: No
  Sender: FDA-Public Use
  Company Number: 20107886

PATIENT
  Age: 13 Year
  Sex: Male

DRUGS (1)
  1. LIORESAL [Suspect]
     Indication: MUSCLE SPASTICITY
     Dosage: DAILY, INTRATHECAL
     Route: 037

REACTIONS (3)
  - IMPLANT SITE EFFUSION [None]
  - IMPLANT SITE INFECTION [None]
  - STAPHYLOCOCCAL INFECTION [None]
